FAERS Safety Report 9419035 (Version 1)
Quarter: 2013Q3

REPORT INFORMATION
  Report Type: Report from Study
  Country: SD (occurrence: SD)
  Receive Date: 20130725
  Receipt Date: 20130725
  Transmission Date: 20140515
  Serious: Yes (Other)
  Sender: FDA-Public Use
  Company Number: PHHY2013SD078289

PATIENT
  Age: 61 Year
  Sex: Male

DRUGS (1)
  1. GLIVEC [Suspect]
     Indication: GASTROINTESTINAL STROMAL TUMOUR
     Dosage: 400 MG
     Dates: start: 20120914

REACTIONS (3)
  - Hepatic cyst [Unknown]
  - Diverticulum intestinal [Unknown]
  - Metastases to liver [Unknown]
